FAERS Safety Report 5716295-8 (Version None)
Quarter: 2008Q2

REPORT INFORMATION
  Report Type: 
  Country: None (occurrence: None)
  Receive Date: 20080424
  Receipt Date: 20080422
  Transmission Date: 20081010
  Serious: Yes (Death, Hospitalization)
  Sender: FDA-Public Use
  Company Number: B0517920A

PATIENT
  Age: 52 Year
  Sex: Female

DRUGS (7)
  1. HYCAMTIN [Suspect]
     Dosage: 3MG PER DAY
     Route: 042
     Dates: start: 20080225, end: 20080229
  2. MOVICOL [Concomitant]
  3. UNKNOWN DRUG [Concomitant]
  4. DIAZEPAM [Concomitant]
  5. LAXOBERAL [Concomitant]
     Route: 048
  6. OXYCONTIN [Concomitant]
  7. CYTOSTATICS [Concomitant]

REACTIONS (4)
  - NAUSEA [None]
  - PANCYTOPENIA [None]
  - SEPSIS [None]
  - VOMITING [None]
